FAERS Safety Report 14490160 (Version 3)
Quarter: 2020Q1

REPORT INFORMATION
  Report Type: Spontaneous
  Country: TR (occurrence: TR)
  Receive Date: 20180206
  Receipt Date: 20200321
  Transmission Date: 20200409
  Serious: No
  Sender: FDA-Public Use
  Company Number: TR-IPSEN BIOPHARMACEUTICALS, INC.-2018-01993

PATIENT
  Age: 55 Year
  Sex: Female
  Weight: 84 kg

DRUGS (6)
  1. LEVOTHYROXINE SODIUM. [Concomitant]
     Active Substance: LEVOTHYROXINE SODIUM
  2. GLIMEPIRIDE. [Concomitant]
     Active Substance: GLIMEPIRIDE
  3. HYDROCHLOROTHIAZIDE. [Concomitant]
     Active Substance: HYDROCHLOROTHIAZIDE
  4. ATORVASTATIN [Concomitant]
     Active Substance: ATORVASTATIN
  5. RAMIPRIL. [Concomitant]
     Active Substance: RAMIPRIL
  6. DYSPORT [Suspect]
     Active Substance: ABOBOTULINUMTOXINA
     Indication: MUSCLE SPASTICITY
     Dosage: 500 IU
     Route: 030
     Dates: start: 20180119, end: 20180119

REACTIONS (1)
  - Oropharyngeal pain [Recovered/Resolved]

NARRATIVE: CASE EVENT DATE: 20180119
